FAERS Safety Report 8119804-7 (Version None)
Quarter: 2012Q1

REPORT INFORMATION
  Report Type: 
  Country: None (occurrence: None)
  Receive Date: 20120206
  Receipt Date: 20120206
  Transmission Date: 20120608
  Serious: Yes (Hospitalization)
  Sender: FDA-Public Use
  Company Number: None

PATIENT
  Age: 83 Year
  Sex: Male
  Weight: 65.3 kg

DRUGS (14)
  1. FERROUS SULFATE TAB [Concomitant]
  2. METOPROLOL TARTRATE [Concomitant]
  3. MILK OF MAGNESIA TAB [Concomitant]
  4. AMLODIPINE [Concomitant]
  5. DABIGATRAN 150MG BOEHRINGER INGELHEIM [Suspect]
     Indication: ATRIAL FIBRILLATION
     Dosage: 150 MG TWICE DAILY ORAL
     Route: 048
     Dates: start: 20120102, end: 20120110
  6. DABIGATRAN 150MG BOEHRINGER INGELHEIM [Suspect]
     Indication: CEREBROVASCULAR ACCIDENT
     Dosage: 150 MG TWICE DAILY ORAL
     Route: 048
     Dates: start: 20120102, end: 20120110
  7. ATORVASTATIN [Concomitant]
  8. ARTIFICIAL TEARS [Concomitant]
  9. GABAPENTIN [Concomitant]
  10. SENNA [Concomitant]
  11. ASCORBIC ACID [Concomitant]
  12. ACETAMINOPHEN [Concomitant]
  13. CEPACOL [Concomitant]
  14. PROMETHAZINE [Concomitant]

REACTIONS (7)
  - CREATININE RENAL CLEARANCE DECREASED [None]
  - ABDOMINAL PAIN [None]
  - VOMITING [None]
  - NORMOCHROMIC NORMOCYTIC ANAEMIA [None]
  - DIARRHOEA HAEMORRHAGIC [None]
  - GASTRIC ULCER [None]
  - HAEMORRHAGIC ARTERIOVENOUS MALFORMATION [None]
